FAERS Safety Report 25841493 (Version 1)
Quarter: 2025Q3

REPORT INFORMATION
  Report Type: Spontaneous
  Country: EU (occurrence: EU)
  Receive Date: 20250924
  Receipt Date: 20250924
  Transmission Date: 20251020
  Serious: Yes (Death, Hospitalization, Other)
  Sender: GRANULES PHARMACEUTICALS INC
  Company Number: EU-GRANULES-FR-2025GRALIT00530

PATIENT
  Age: 61 Year
  Sex: Female

DRUGS (5)
  1. ACETAMINOPHEN [Suspect]
     Active Substance: ACETAMINOPHEN
     Indication: Product used for unknown indication
     Route: 048
  2. CEFUROXIME [Concomitant]
     Active Substance: CEFUROXIME
     Indication: Product used for unknown indication
     Route: 065
  3. FLUINDIONE [Concomitant]
     Active Substance: FLUINDIONE
     Indication: Product used for unknown indication
     Route: 065
  4. IRON [Concomitant]
     Active Substance: IRON
     Indication: Supplementation therapy
     Route: 065
  5. ACETYLCYSTEINE [Concomitant]
     Active Substance: ACETYLCYSTEINE
     Indication: Product used for unknown indication
     Route: 065

REACTIONS (14)
  - Asphyxia [Fatal]
  - Visceral congestion [Fatal]
  - Pulmonary oedema [Fatal]
  - Brain oedema [Fatal]
  - Coronary artery stenosis [Fatal]
  - Myocardial haemorrhage [Fatal]
  - Pulmonary alveolar haemorrhage [Fatal]
  - Toxicity to various agents [Fatal]
  - Bezoar [Fatal]
  - Cyanosis [Fatal]
  - Cervix inflammation [Fatal]
  - Vascular calcification [Fatal]
  - Vomiting [Unknown]
  - Overdose [Unknown]
